FAERS Safety Report 12391204 (Version 1)
Quarter: 2016Q2

REPORT INFORMATION
  Report Type: Spontaneous
  Country: JP (occurrence: JP)
  Receive Date: 20160520
  Receipt Date: 20160520
  Transmission Date: 20160815
  Serious: Yes (Hospitalization)
  Sender: FDA-Public Use
  Company Number: PHJP2001JP000812

PATIENT
  Age: 40 Year
  Sex: Female

DRUGS (1)
  1. TEGRETOL [Suspect]
     Active Substance: CARBAMAZEPINE
     Indication: PRODUCT USED FOR UNKNOWN INDICATION
     Route: 065

REACTIONS (4)
  - Dysphonia [Recovered/Resolved]
  - Diet refusal [Recovered/Resolved]
  - Pneumonia [Recovered/Resolved]
  - Toxic epidermal necrolysis [Recovered/Resolved]
